FAERS Safety Report 5432991-4 (Version None)
Quarter: 2007Q3

REPORT INFORMATION
  Report Type: 
  Country: None (occurrence: None)
  Receive Date: 20070831
  Receipt Date: 20070822
  Transmission Date: 20080115
  Serious: Yes (Other)
  Sender: FDA-Public Use
  Company Number: PHEH2007US11190

PATIENT
  Age: 39 Year
  Sex: Female

DRUGS (6)
  1. ZELNORM [Suspect]
     Indication: CONSTIPATION
     Dosage: 6 MG, BID
     Dates: start: 20010101
  2. ZELNORM [Suspect]
     Dosage: 6 MG, QD
     Dates: end: 20061101
  3. DIOVAN [Concomitant]
  4. ALBUTEROL [Concomitant]
  5. TRAMADOL HCL [Concomitant]
     Indication: ARTHRALGIA
  6. PAXIL [Concomitant]
     Indication: DEPRESSION

REACTIONS (13)
  - ABDOMINAL DISTENSION [None]
  - ABDOMINAL PAIN UPPER [None]
  - ANOREXIA [None]
  - ASTHMA [None]
  - BREAST LUMP REMOVAL [None]
  - BREAST MASS [None]
  - BREAST OPERATION [None]
  - CARDIAC FLUTTER [None]
  - DYSPNOEA [None]
  - RESTLESSNESS [None]
  - SWELLING [None]
  - UTERINE LEIOMYOMA [None]
  - UTERINE MASS [None]
